FAERS Safety Report 9306459 (Version 4)
Quarter: 2013Q3

REPORT INFORMATION
  Report Type: Spontaneous
  Country: US (occurrence: None)
  Receive Date: 20130501
  Receipt Date: 20130930
  Transmission Date: 20140515
  Serious: Yes (Other)
  Sender: FDA-Public Use
  Company Number: 2012033212

PATIENT
  Age: 38 Year
  Sex: Female
  Weight: 86.18 kg

DRUGS (29)
  1. PRIVIGEN (IMMUNE GLOBULIN INTRAVENOUS (HUMAN) 10% LIQUID) [Suspect]
     Indication: IMMUNODEFICIENCY COMMON VARIABLE
     Dosage: 14X/4 WEEKS, 10 GM VIALS AT A MAXIMUM RATE OF 395 ML/HR
     Route: 042
     Dates: start: 20120823
  2. TYLENOL (PARACETAMOL) [Concomitant]
  3. BENADRYL (DIPHENHYDRAMINE HYDROCHLORIDE) [Concomitant]
  4. DIPHENHYDRAMINE (DIPHENHYDRAMINE) [Concomitant]
  5. AZITHROMYCIN (AZITHROMYCIN) [Concomitant]
  6. HEPARIN (HEPARIN) [Concomitant]
  7. SODIUM CHLORIDE [Concomitant]
  8. EPI-PEN (EPINEPHRINE) [Concomitant]
  9. LASIX (FUROSEMIDE) [Concomitant]
  10. TRICOR (FENOFIBRATE) [Concomitant]
  11. SYNTHROID (LEVOTHYROXINE SODIUM) [Concomitant]
  12. POTASSIUM CHLORIDE ER (POTASSIUM CHLORIDE) [Concomitant]
  13. GABAPENTIN (GABAPENTIN) [Concomitant]
  14. FLONASE (FLUTICASONE PROPIONATE) [Concomitant]
  15. VENTOLIN HFA (SALBUTAMOL SULFATE) [Concomitant]
  16. SYMBICORT [Concomitant]
  17. LOVAZA (OMEGA-3 FATY ACIDS) [Concomitant]
  18. PRILOSEC [Concomitant]
  19. CYANOCOBALAMIN (CYANOCOBALAMIN) [Concomitant]
  20. FLINSTONES IRON (FLINTSONE VITAMINS W/IRON) [Concomitant]
  21. TRAMADOL (TRAMADOL) [Concomitant]
  22. ACETAMINOPHEN (PARACETAMOL) [Concomitant]
  23. AVELOX (MOXIFLOXACIN HYDROCHLORIDE) [Concomitant]
  24. TEGRETOL (CARBAMAZEPINE) [Concomitant]
  25. FENOFIBRATE (FENOFIBRATE) [Concomitant]
  26. BENTYL (DICYCLOVERINE HYDROCHLORIDE) [Concomitant]
  27. VITAMIN D3 [Concomitant]
  28. ANTIVERT (ANCOVERT) [Concomitant]
  29. BENTYL (DICYCLOVERINE HYDROCHLORIDE) [Concomitant]

REACTIONS (10)
  - Headache [None]
  - Nausea [None]
  - Vomiting [None]
  - Diarrhoea [None]
  - Small intestinal bacterial overgrowth [None]
  - Weight increased [None]
  - Respiratory syncytial virus infection [None]
  - Lung infection [None]
  - Productive cough [None]
  - Pyrexia [None]
